FAERS Safety Report 8550350-2 (Version None)
Quarter: 2012Q3

REPORT INFORMATION
  Report Type: 
  Country: None (occurrence: None)
  Receive Date: 20120730
  Receipt Date: 20120724
  Transmission Date: 20120928
  Serious: Yes (Other)
  Sender: FDA-Public Use
  Company Number: US-PFIZER INC-2012179034

PATIENT
  Sex: Male

DRUGS (3)
  1. ARTHROTEC [Suspect]
     Dosage: UNK
  2. NEURONTIN [Suspect]
     Dosage: UNK
  3. NITROSTAT [Suspect]
     Dosage: UNK

REACTIONS (7)
  - JOINT INJURY [None]
  - LOCAL SWELLING [None]
  - MALIGNANT NEOPLASM OF EYE [None]
  - CARDIAC DISORDER [None]
  - ATTENTION DEFICIT/HYPERACTIVITY DISORDER [None]
  - ARTHRITIS [None]
  - HEADACHE [None]
